FAERS Safety Report 9640900 (Version 1)
Quarter: 2013Q4

REPORT INFORMATION
  Report Type: Spontaneous
  Country: US (occurrence: None)
  Receive Date: 20131022
  Receipt Date: 20131022
  Transmission Date: 20140711
  Serious: Yes (Hospitalization)
  Sender: FDA-Public Use
  Company Number: None

PATIENT
  Age: 47 Year
  Sex: Male
  Weight: 82.3 kg

DRUGS (1)
  1. HALOPERIDOL [Suspect]
     Indication: PSYCHOTIC DISORDER
     Route: 048
     Dates: start: 20130719, end: 20130719

REACTIONS (1)
  - Dystonia [None]
